FAERS Safety Report 9132703 (Version 5)
Quarter: 2013Q3

REPORT INFORMATION
  Report Type: Report from Study
  Country: AU (occurrence: AU)
  Receive Date: 20130301
  Receipt Date: 20130905
  Transmission Date: 20140515
  Serious: Yes (Death, Other)
  Sender: FDA-Public Use
  Company Number: AU-ROCHE-1196439

PATIENT
  Age: 66 Year
  Sex: Female
  Weight: 61 kg

DRUGS (19)
  1. TRASTUZUMAB [Suspect]
     Indication: NEOPLASM MALIGNANT
     Route: 065
     Dates: start: 201103, end: 201110
  2. TRASTUZUMAB [Suspect]
     Route: 065
     Dates: start: 201202, end: 201206
  3. TRASTUZUMAB [Suspect]
     Route: 065
     Dates: start: 201211
  4. CAPECITABINE [Suspect]
     Indication: NEOPLASM MALIGNANT
     Route: 065
     Dates: start: 201303, end: 201305
  5. TRASTUZUMAB EMTANSINE [Suspect]
     Indication: NEOPLASM MALIGNANT
     Route: 042
     Dates: start: 20130718
  6. TRASTUZUMAB EMTANSINE [Suspect]
     Indication: BREAST CANCER
     Route: 065
     Dates: start: 20130808
  7. CARBOPLATIN [Concomitant]
     Route: 065
     Dates: start: 2009, end: 2010
  8. CARBOPLATIN [Concomitant]
     Route: 065
     Dates: start: 201103, end: 201110
  9. ABRAXANE [Concomitant]
     Route: 065
     Dates: start: 201103, end: 201110
  10. CAELYX [Concomitant]
     Route: 065
     Dates: start: 201207, end: 201211
  11. LAPATINIB [Concomitant]
     Dosage: 2 CYCLES
     Route: 065
  12. DOCETAXEL [Concomitant]
     Route: 065
     Dates: start: 2009, end: 2010
  13. DOCETAXEL [Concomitant]
     Route: 065
     Dates: start: 201103, end: 201110
  14. VINORELBINE [Concomitant]
     Route: 065
     Dates: start: 201202, end: 201206
  15. TYKERB [Concomitant]
     Route: 065
     Dates: start: 201303, end: 201305
  16. IRINOTECAN [Concomitant]
  17. SODIUM VALPROATE [Concomitant]
     Indication: CONVULSION PROPHYLAXIS
     Route: 048
  18. DEXAMETHASONE [Concomitant]
     Indication: NAUSEA
     Route: 048
  19. DEXAMETHASONE [Concomitant]
     Indication: PAIN

REACTIONS (6)
  - Disease progression [Fatal]
  - Metastases to liver [Unknown]
  - Metastases to central nervous system [Unknown]
  - Hepatic function abnormal [Unknown]
  - Tumour marker increased [Unknown]
  - Metastases to liver [Unknown]
